FAERS Safety Report 18684235 (Version 1)
Quarter: 2020Q4

REPORT INFORMATION
  Report Type: Spontaneous
  Country: US (occurrence: US)
  Receive Date: 20201230
  Receipt Date: 20201230
  Transmission Date: 20210114
  Serious: Yes (Other)
  Sender: FDA-Public Use
  Company Number: US-ASTRAZENECA-2020SF73267

PATIENT
  Sex: Female

DRUGS (5)
  1. PREDNISONE. [Suspect]
     Active Substance: PREDNISONE
     Route: 065
  2. DOXIL [Suspect]
     Active Substance: DOXORUBICIN HYDROCHLORIDE
     Route: 065
  3. TAXOL [Suspect]
     Active Substance: PACLITAXEL
     Route: 065
     Dates: start: 2015
  4. LYNPARZA [Suspect]
     Active Substance: OLAPARIB
     Route: 048
  5. CARBOPLATIN. [Suspect]
     Active Substance: CARBOPLATIN
     Route: 065
     Dates: start: 2015

REACTIONS (7)
  - Platelet count decreased [Unknown]
  - Ovarian cancer recurrent [Unknown]
  - Drug hypersensitivity [Unknown]
  - Sunburn [Unknown]
  - Amnesia [Unknown]
  - Rash [Not Recovered/Not Resolved]
  - White blood cell count decreased [Unknown]
